FAERS Safety Report 12647005 (Version 1)
Quarter: 2016Q3

REPORT INFORMATION
  Report Type: Spontaneous
  Country: CA (occurrence: CA)
  Receive Date: 20160812
  Receipt Date: 20160812
  Transmission Date: 20161109
  Serious: Yes (Other)
  Sender: FDA-Public Use
  Company Number: CA-ACCORD-043057

PATIENT
  Age: 52 Year
  Sex: Male

DRUGS (6)
  1. ETOPOSIDE. [Suspect]
     Active Substance: ETOPOSIDE
     Indication: NEUROENDOCRINE CARCINOMA METASTATIC
     Dosage: 6 CYCLES
  2. TOPOTECAN [Concomitant]
     Active Substance: TOPOTECAN\TOPOTECAN HYDROCHLORIDE
     Indication: NEUROENDOCRINE CARCINOMA METASTATIC
     Dosage: 2 CYCLES
  3. FOLINIC ACID [Suspect]
     Active Substance: LEUCOVORIN
     Indication: NEUROENDOCRINE CARCINOMA METASTATIC
     Dosage: 11 CYCLES
  4. FLUOROURACIL. [Suspect]
     Active Substance: FLUOROURACIL
     Indication: NEUROENDOCRINE CARCINOMA METASTATIC
     Dosage: 11 CYCLES
  5. CARBOPLATIN. [Suspect]
     Active Substance: CARBOPLATIN
     Indication: NEUROENDOCRINE CARCINOMA METASTATIC
     Dosage: 6 CYCLES
  6. IRINOTECAN [Suspect]
     Active Substance: IRINOTECAN
     Indication: NEUROENDOCRINE CARCINOMA METASTATIC
     Dosage: 11 CYCLES

REACTIONS (3)
  - Hepatotoxicity [Unknown]
  - Off label use [Unknown]
  - Neutropenia [Unknown]
